FAERS Safety Report 10962471 (Version 1)
Quarter: 2015Q1

REPORT INFORMATION
  Report Type: Spontaneous
  Country: IL (occurrence: IL)
  Receive Date: 20150327
  Receipt Date: 20150327
  Transmission Date: 20150721
  Serious: Yes (Hospitalization, Other)
  Sender: FDA-Public Use
  Company Number: IL-GLAXOSMITHKLINE INC.-IL2015GSK038783

PATIENT
  Sex: Female

DRUGS (1)
  1. REVOLADE [Suspect]
     Active Substance: ELTROMBOPAG
     Indication: IMMUNE THROMBOCYTOPENIC PURPURA

REACTIONS (4)
  - Fall [Recovering/Resolving]
  - Haemorrhage [Recovering/Resolving]
  - Platelet count decreased [Recovering/Resolving]
  - Face injury [Recovering/Resolving]
